FAERS Safety Report 9036419 (Version 1)
Quarter: 2013Q1

REPORT INFORMATION
  Report Type: Spontaneous
  Country: US (occurrence: None)
  Receive Date: 20130117
  Receipt Date: 20130117
  Transmission Date: 20140127
  Serious: Yes (Death)
  Sender: FDA-Public Use
  Company Number: None

PATIENT
  Age: 48 Year
  Sex: Male
  Weight: 66.23 kg

DRUGS (2)
  1. CITALOPRAM [Suspect]
     Indication: DEPRESSION
     Route: 048
  2. SERTRALINE [Suspect]
     Indication: DEPRESSION
     Route: 048

REACTIONS (13)
  - Confusional state [None]
  - Dehydration [None]
  - Tremor [None]
  - Cerebral ischaemia [None]
  - Pain [None]
  - Moaning [None]
  - Eye movement disorder [None]
  - Hyperthermia [None]
  - Tachycardia [None]
  - Hypertension [None]
  - Hyperreflexia [None]
  - Serotonin syndrome [None]
  - Mental status changes [None]
